FAERS Safety Report 7293477-8 (Version None)
Quarter: 2011Q1

REPORT INFORMATION
  Report Type: 
  Country: None (occurrence: None)
  Receive Date: 20110215
  Receipt Date: 20110209
  Transmission Date: 20110831
  Serious: Yes (Other)
  Sender: FDA-Public Use
  Company Number: US-SANOFI-AVENTIS-2011SA003400

PATIENT
  Age: 55 Year
  Sex: Male

DRUGS (4)
  1. LANTUS [Suspect]
     Dosage: ONCE IN THE MORNING AND ONCE IN THE EVENING DOSE:22 UNIT(S)
     Route: 058
     Dates: start: 20100101
  2. NOVOLOG [Concomitant]
     Route: 065
  3. LANTUS [Suspect]
     Indication: TYPE 2 DIABETES MELLITUS
     Route: 058
  4. SOLOSTAR [Suspect]
     Indication: TYPE 2 DIABETES MELLITUS
     Dates: start: 20100101

REACTIONS (7)
  - RETINOPATHY [None]
  - HYPERGLYCAEMIA [None]
  - BLOOD GLUCOSE DECREASED [None]
  - INFLAMMATION [None]
  - ABDOMINAL DISCOMFORT [None]
  - NON-HODGKIN'S LYMPHOMA [None]
  - MALAISE [None]
